FAERS Safety Report 13759913 (Version 1)
Quarter: 2017Q3

REPORT INFORMATION
  Report Type: Spontaneous
  Country: US (occurrence: US)
  Receive Date: 20170717
  Receipt Date: 20170717
  Transmission Date: 20171127
  Serious: Yes (Hospitalization)
  Sender: FDA-Public Use
  Company Number: US-B.I. PHARMACEUTICALS,INC./RIDGEFIELD-2017-BI-038679

PATIENT
  Age: 78 Year
  Sex: Female

DRUGS (2)
  1. COMBIVENT [Suspect]
     Active Substance: ALBUTEROL SULFATE\IPRATROPIUM BROMIDE
     Indication: CHRONIC OBSTRUCTIVE PULMONARY DISEASE
     Dosage: FORM STRENGTH AND UNIT DOSE: 20 MCG / 100 MCG; DAILY DOSE: 80MCG/400 MCG
     Route: 055
     Dates: start: 2011
  2. PREMARIN [Concomitant]
     Active Substance: ESTROGENS, CONJUGATED
     Indication: HOT FLUSH
     Route: 048
     Dates: start: 1975

REACTIONS (4)
  - Abdominal distension [Not Recovered/Not Resolved]
  - Drug effect incomplete [Not Recovered/Not Resolved]
  - Intestinal obstruction [Recovered/Resolved]
  - Hernia [Recovered/Resolved]

NARRATIVE: CASE EVENT DATE: 2011
